FAERS Safety Report 25439270 (Version 1)
Quarter: 2025Q2

REPORT INFORMATION
  Report Type: Spontaneous
  Country: US (occurrence: US)
  Receive Date: 20250616
  Receipt Date: 20250616
  Transmission Date: 20250716
  Serious: Yes (Death)
  Sender: AMGEN
  Company Number: US-AMGEN-USASP2025116062

PATIENT

DRUGS (2)
  1. PREDNISONE [Suspect]
     Active Substance: PREDNISONE
     Indication: Cryptococcal meningoencephalitis
     Dosage: 1 MILLIGRAM/KILOGRAM, QD, TAPERED
     Route: 048
  2. METHYLPREDNISOLONE [Concomitant]
     Active Substance: METHYLPREDNISOLONE
     Dosage: 1 GRAM, QD,  FOR 1 WEEK
     Route: 040

REACTIONS (2)
  - Death [Fatal]
  - Off label use [Unknown]
